FAERS Safety Report 7669331-6 (Version None)
Quarter: 2011Q3

REPORT INFORMATION
  Report Type: 
  Country: None (occurrence: None)
  Receive Date: 20110808
  Receipt Date: 20110803
  Transmission Date: 20111222
  Serious: Yes (Other)
  Sender: FDA-Public Use
  Company Number: PHHY2011AR70613

PATIENT
  Sex: Female

DRUGS (1)
  1. ZOLEDRONOC ACID [Suspect]
     Indication: OSTEOPENIA
     Dosage: UNK UKN, UNK
     Route: 042
     Dates: start: 20110623

REACTIONS (4)
  - CHEST DISCOMFORT [None]
  - ABDOMINAL DISCOMFORT [None]
  - SYNCOPE [None]
  - INFLUENZA LIKE ILLNESS [None]
